FAERS Safety Report 7733673-6 (Version None)
Quarter: 2011Q3

REPORT INFORMATION
  Report Type: 
  Country: None (occurrence: None)
  Receive Date: 20110907
  Receipt Date: 20110829
  Transmission Date: 20111222
  Serious: No
  Sender: FDA-Public Use
  Company Number: CH-JNJFOC-20110810884

PATIENT
  Sex: Female

DRUGS (2)
  1. PALIPERIDONE [Suspect]
     Indication: SCHIZOPHRENIA, PARANOID TYPE
     Route: 030
     Dates: start: 20110601, end: 20110821
  2. PALIPERIDONE [Suspect]
     Route: 030
     Dates: start: 20110822

REACTIONS (2)
  - AGITATION [None]
  - LOGORRHOEA [None]
